FAERS Safety Report 4497110-X (Version None)
Quarter: 2004Q4

REPORT INFORMATION
  Report Type: 
  Country: None (occurrence: None)
  Receive Date: 20041110
  Receipt Date: 20041101
  Transmission Date: 20050328
  Serious: Yes (Other)
  Sender: FDA-Public Use
  Company Number: PHFR2004GB04112

PATIENT
  Age: 37 Year
  Sex: Male

DRUGS (2)
  1. LAMISIL [Suspect]
     Indication: FUNGAL SKIN INFECTION
     Dosage: 1 ONCE A DAY
     Route: 048
     Dates: start: 20041008, end: 20041022
  2. DESMOPRESSIN [Concomitant]
     Dosage: 1 TO BE TAKEN AT NIGHT
     Route: 065
     Dates: start: 20030325

REACTIONS (1)
  - DEPRESSION [None]
